FAERS Safety Report 25751013 (Version 1)
Quarter: 2025Q3

REPORT INFORMATION
  Report Type: Spontaneous
  Country: US (occurrence: None)
  Receive Date: 20250830
  Receipt Date: 20250830
  Transmission Date: 20251021
  Serious: Yes (Death)
  Sender: FDA-CTU
  Company Number: None

PATIENT
  Age: 76 Year
  Sex: Male

DRUGS (7)
  1. CREON [Suspect]
     Active Substance: PANCRELIPASE AMYLASE\PANCRELIPASE LIPASE\PANCRELIPASE PROTEASE
     Indication: Pancreatic failure
     Route: 048
     Dates: start: 20250703, end: 20250812
  2. acetaminophen ER 650 [Concomitant]
  3. ACETAMINOPHEN\HYDROCODONE [Concomitant]
     Active Substance: ACETAMINOPHEN\HYDROCODONE
  4. Cyanocobalamin 1000mcg/ml [Concomitant]
  5. Pioglitazone/metformin 15/500 [Concomitant]
  6. CREON [Concomitant]
     Active Substance: PANCRELIPASE AMYLASE\PANCRELIPASE LIPASE\PANCRELIPASE PROTEASE
  7. lisinopril 2.5 mg [Concomitant]

REACTIONS (3)
  - Death [None]
  - Malignant neoplasm progression [None]
  - Quality of life decreased [None]

NARRATIVE: CASE EVENT DATE: 20250817
